FAERS Safety Report 9333155 (Version 1)
Quarter: 2013Q2

REPORT INFORMATION
  Report Type: Spontaneous
  Country: CN (occurrence: CN)
  Receive Date: 20130606
  Receipt Date: 20130606
  Transmission Date: 20140414
  Serious: Yes (Other)
  Sender: FDA-Public Use
  Company Number: CN-SANOFI-AVENTIS-2013SA053889

PATIENT
  Age: 43 Year
  Sex: Male

DRUGS (3)
  1. PLAVIX [Suspect]
     Indication: THROMBOSIS
     Route: 048
     Dates: start: 20130403
  2. PLAVIX [Suspect]
     Indication: STENT PLACEMENT
     Route: 048
     Dates: start: 20130403
  3. ASPIRIN [Concomitant]

REACTIONS (2)
  - Altered state of consciousness [Not Recovered/Not Resolved]
  - Hallucination [Not Recovered/Not Resolved]
